FAERS Safety Report 19240809 (Version 1)
Quarter: 2021Q2

REPORT INFORMATION
  Report Type: Report from Study
  Country: FR (occurrence: FR)
  Receive Date: 20210511
  Receipt Date: 20210511
  Transmission Date: 20210717
  Serious: Yes (Death, Hospitalization, Other)
  Sender: FDA-Public Use
  Company Number: FR-ROCHE-2691114

PATIENT
  Age: 69 Year
  Sex: Male
  Weight: 95 kg

DRUGS (5)
  1. CLOPIDOGREL [Suspect]
     Active Substance: CLOPIDOGREL BISULFATE
     Indication: PRODUCT USED FOR UNKNOWN INDICATION
     Route: 065
     Dates: start: 20201004
  2. ATEZOLIZUMAB. [Suspect]
     Active Substance: ATEZOLIZUMAB
     Indication: METASTATIC RENAL CELL CARCINOMA
     Dosage: ON 21/SEP/2020, HE RECEIVED THE MOST RECENT DOSE OF IV ATEZOLIZUMAB PRIOR TO ADVERSE EVENT (AE) ONSE
     Route: 041
     Dates: start: 20190318
  3. ASPIRIN. [Suspect]
     Active Substance: ASPIRIN
     Indication: PRODUCT USED FOR UNKNOWN INDICATION
     Route: 065
     Dates: start: 20201003, end: 20201004
  4. RO6874281 (FAP IL2V MAB) [Suspect]
     Active Substance: SIMLUKAFUSP ALFA
     Indication: METASTATIC RENAL CELL CARCINOMA
     Dosage: ON 21/SEP/2020, HE RECEIVED THE MOST RECENT DOSE OF IV RO6874281 (FAP IL2V MAB) PRIOR TO AE ONSET.
     Route: 042
     Dates: start: 20190318
  5. BEVACIZUMAB. [Suspect]
     Active Substance: BEVACIZUMAB
     Indication: METASTATIC RENAL CELL CARCINOMA
     Dosage: ON 28/SEP/2020, HE RECEIVED MOST RECENT DOSE OF IV BEVACIZUMAB PRIOR TO AE.?ON 07/SEP/2020, HE RECEI
     Route: 042
     Dates: start: 20190415

REACTIONS (3)
  - Hypothyroidism [Not Recovered/Not Resolved]
  - Myocardial ischaemia [Not Recovered/Not Resolved]
  - Haemothorax [Fatal]

NARRATIVE: CASE EVENT DATE: 20200921
